FAERS Safety Report 7358083-5 (Version None)
Quarter: 2011Q1

REPORT INFORMATION
  Report Type: 
  Country: None (occurrence: None)
  Receive Date: 20110317
  Receipt Date: 20110308
  Transmission Date: 20110831
  Serious: Yes (Hospitalization, Other)
  Sender: FDA-Public Use
  Company Number: AT-ELI_LILLY_AND_COMPANY-AT201102001252

PATIENT
  Sex: Female
  Weight: 82 kg

DRUGS (5)
  1. ASPIRIN [Concomitant]
     Dosage: 100 MG, DAILY (1/D)
     Route: 065
  2. SIMVASTATIN [Concomitant]
     Dosage: 40 MG, DAILY (1/D)
     Route: 065
  3. EFFIENT [Suspect]
     Indication: ISCHAEMIA
     Dosage: UNK, UNKNOWN
     Route: 065
     Dates: start: 20100709
  4. NOMEXOR [Concomitant]
     Dosage: 5 MG, 1/2 2/D
     Route: 065
  5. ACETAN [Concomitant]
     Dosage: 10 MG, DAILY (1/D)
     Route: 065

REACTIONS (8)
  - ASTHENIA [None]
  - GASTRITIS EROSIVE [None]
  - ATELECTASIS [None]
  - CHEST PAIN [None]
  - HYPOCHROMIC ANAEMIA [None]
  - EPISTAXIS [None]
  - MOUTH HAEMORRHAGE [None]
  - PAIN IN EXTREMITY [None]
